FAERS Safety Report 7884565-3 (Version None)
Quarter: 2011Q4

REPORT INFORMATION
  Report Type: 
  Country: None (occurrence: None)
  Receive Date: 20111102
  Receipt Date: 20111026
  Transmission Date: 20120403
  Serious: Yes (Hospitalization)
  Sender: FDA-Public Use
  Company Number: FR-UCBSA-043384

PATIENT
  Age: 17 Year
  Sex: Female
  Weight: 85 kg

DRUGS (5)
  1. VIMPAT [Suspect]
     Route: 048
     Dates: start: 20110921, end: 20110101
  2. OXCARBAZEPINE [Concomitant]
     Route: 048
  3. VIMPAT [Suspect]
     Indication: CONVULSION
     Route: 048
     Dates: start: 20110914, end: 20110920
  4. TRILEPTAL [Concomitant]
     Indication: CONVULSION
     Dosage: 450 MG + 750 MG, FOR SEVERAL YEARS
     Route: 048
  5. SUMATRIPTAN SUCCINATE [Concomitant]
     Route: 048

REACTIONS (3)
  - DEPRESSIVE SYMPTOM [None]
  - SUBCUTANEOUS HAEMATOMA [None]
  - BALANCE DISORDER [None]
